FAERS Safety Report 13234381 (Version 1)
Quarter: 2017Q1

REPORT INFORMATION
  Report Type: Spontaneous
  Country: US (occurrence: US)
  Receive Date: 20170214
  Receipt Date: 20170214
  Transmission Date: 20170428
  Serious: No
  Sender: FDA-Public Use
  Company Number: None

PATIENT
  Age: 43 Year
  Sex: Female

DRUGS (1)
  1. BENLYSTA [Suspect]
     Active Substance: BELIMUMAB
     Indication: PRODUCT USED FOR UNKNOWN INDICATION
     Route: 042
     Dates: start: 20100213

REACTIONS (5)
  - Pyrexia [None]
  - Pruritus [None]
  - Fatigue [None]
  - Somnolence [None]
  - Chills [None]

NARRATIVE: CASE EVENT DATE: 20170123
